FAERS Safety Report 10109705 (Version 4)
Quarter: 2014Q4

REPORT INFORMATION
  Report Type: Spontaneous
  Country: US (occurrence: US)
  Receive Date: 20140425
  Receipt Date: 20141121
  Transmission Date: 20150528
  Serious: Yes (Other)
  Sender: FDA-Public Use
  Company Number: US-AMGEN-USASP2014024614

PATIENT
  Age: 82 Year
  Sex: Female
  Weight: 47.62 kg

DRUGS (5)
  1. PROLIA [Suspect]
     Active Substance: DENOSUMAB
     Indication: OSTEOPOROSIS POSTMENOPAUSAL
     Dosage: 60 MG, Q6MO
     Route: 058
     Dates: start: 20110703
  2. PROLIA [Suspect]
     Active Substance: DENOSUMAB
     Route: 058
  3. ESTROGEN [Concomitant]
     Active Substance: ESTRONE\SUS SCROFA OVARY
  4. PROLIA [Suspect]
     Active Substance: DENOSUMAB
     Route: 058
  5. PROLIA [Suspect]
     Active Substance: DENOSUMAB
     Route: 058

REACTIONS (13)
  - Joint stiffness [Unknown]
  - Pain in extremity [Unknown]
  - Spinal compression fracture [Unknown]
  - Scoliosis [Unknown]
  - Arthralgia [Unknown]
  - Limb deformity [Unknown]
  - Dysstasia [Unknown]
  - Pain [Unknown]
  - Spinal deformity [Unknown]
  - Feeling abnormal [Unknown]
  - Pain in jaw [Unknown]
  - Myalgia [Unknown]
  - Neuralgia [Unknown]

NARRATIVE: CASE EVENT DATE: 2012
